FAERS Safety Report 8298650-8 (Version None)
Quarter: 2012Q2

REPORT INFORMATION
  Report Type: 
  Country: None (occurrence: None)
  Receive Date: 20120419
  Receipt Date: 20120405
  Transmission Date: 20120825
  Serious: Yes (Hospitalization)
  Sender: FDA-Public Use
  Company Number: JP-NOVEN-12JP004428

PATIENT
  Age: 67 Year
  Sex: Female

DRUGS (1)
  1. PAROXETINE [Suspect]
     Indication: DEPRESSION
     Dosage: 20 MG, QD

REACTIONS (7)
  - DRUG EFFECT DECREASED [None]
  - DELUSION [None]
  - PSYCHOMOTOR SKILLS IMPAIRED [None]
  - DISTURBANCE IN SOCIAL BEHAVIOUR [None]
  - NIGHTMARE [None]
  - ANXIETY [None]
  - INSOMNIA [None]
